FAERS Safety Report 25937249 (Version 1)
Quarter: 2025Q4

REPORT INFORMATION
  Report Type: Spontaneous
  Country: EU (occurrence: EU)
  Receive Date: 20251017
  Receipt Date: 20251017
  Transmission Date: 20260117
  Serious: Yes (Death, Other)
  Sender: MERCK SHARP & DOHME LLC
  Company Number: None

PATIENT
  Age: 64 Year
  Sex: Female

DRUGS (7)
  1. KEYTRUDA [Suspect]
     Active Substance: PEMBROLIZUMAB
     Indication: Triple negative breast cancer
     Dosage: 200MG EVERY 3 WEEKS X4 AND 400MG X1 /  ?200MG EVERY 3 WEEKS X4 AND 400MG X1  ??NEOADJUVANT TREATM...
     Route: 042
     Dates: start: 20240405, end: 20240703
  2. DOXORUBICIN [Concomitant]
     Active Substance: DOXORUBICIN
     Indication: Triple negative breast cancer
     Dosage: 120 MG
     Route: 042
     Dates: start: 20240703, end: 20240703
  3. DOXORUBICIN [Concomitant]
     Active Substance: DOXORUBICIN
     Indication: Triple negative breast cancer
     Dosage: NEOADJUVANT TREATMENT. THE PATIENT RECEIVED DOXORUBICIN AND CYCLOPHOSPHAMIDE CONCURRENTLY WITH TH...
     Route: 042
     Dates: start: 20240405
  4. CYCLOPHOSPHAMIDE [Concomitant]
     Active Substance: CYCLOPHOSPHAMIDE
     Indication: Triple negative breast cancer
     Dosage: 1200 MG
     Route: 042
     Dates: start: 20240703, end: 20240703
  5. CYCLOPHOSPHAMIDE [Concomitant]
     Active Substance: CYCLOPHOSPHAMIDE
     Indication: Triple negative breast cancer
     Dosage: NEOADJUVANT TREATMENT.  ?THE PATIENT RECEIVED DOXORUBICIN AND CYCLOPHOSPHAMIDE CONCURRENTLY WITH ...
     Route: 042
     Dates: start: 20240405
  6. DOCETAXEL [Concomitant]
     Active Substance: DOCETAXEL
     Indication: Triple negative breast cancer
     Dosage: 150MG, NEOADJUVANT TREATMENT. THE PATIENT RECEIVED DOCETAXEL AND CARBOPLATIN CONCURRENTLY WITH TH...
     Route: 042
     Dates: start: 20240405, end: 20240610
  7. CARBOPLATIN [Concomitant]
     Active Substance: CARBOPLATIN
     Indication: Triple negative breast cancer
     Dosage: 540MG, NEOADJUVANT TREATMENT.  ?THE PATIENT RECEIVED DOCETAXEL AND CARBOPLATIN CONCURRENTLY WITH ...
     Route: 042
     Dates: start: 20240405, end: 20240610

REACTIONS (11)
  - Haemophagocytic lymphohistiocytosis [Fatal]
  - Renal injury [Fatal]
  - Haemolytic anaemia [Fatal]
  - Pancytopenia [Fatal]
  - Inappropriate schedule of product administration [Unknown]
  - Fall [Unknown]
  - Hepatic failure [Fatal]
  - Inappropriate schedule of product administration [Unknown]
  - Product use issue [Unknown]
  - Subdural haemorrhage [Unknown]
  - General physical health deterioration [Unknown]

NARRATIVE: CASE EVENT DATE: 20240101
